FAERS Safety Report 14432470 (Version 2)
Quarter: 2018Q1

REPORT INFORMATION
  Report Type: Spontaneous
  Country: US (occurrence: US)
  Receive Date: 20180124
  Receipt Date: 20180216
  Transmission Date: 20180509
  Serious: Yes (Hospitalization)
  Sender: FDA-Public Use
  Company Number: US-SA-2018SA015364

PATIENT
  Age: 34 Year
  Sex: Female

DRUGS (11)
  1. DACARBAZINE. [Suspect]
     Active Substance: DACARBAZINE
     Indication: HODGKIN^S DISEASE NODULAR SCLEROSIS
     Dosage: AUC: 1.9 M2, 375 MG/M2
     Route: 042
  2. DIPHENHYDRAMINE. [Suspect]
     Active Substance: DIPHENHYDRAMINE
     Route: 065
  3. DOXORUBICIN [Suspect]
     Active Substance: DOXORUBICIN
     Indication: HODGKIN^S DISEASE NODULAR SCLEROSIS
     Route: 065
  4. VINBLASTINE [Suspect]
     Active Substance: VINBLASTINE
     Indication: HODGKIN^S DISEASE NODULAR SCLEROSIS
     Route: 065
  5. BLEOMYCIN [Suspect]
     Active Substance: BLEOMYCIN SULFATE
     Indication: HODGKIN^S DISEASE NODULAR SCLEROSIS
     Route: 065
  6. PALONOSETRON. [Concomitant]
     Active Substance: PALONOSETRON HYDROCHLORIDE
     Route: 065
  7. DEXAMETHASONE SALT NOT SPECIFIED [Suspect]
     Active Substance: DEXAMETHASONE
     Route: 065
  8. FERROUS SULFATE. [Concomitant]
     Active Substance: FERROUS SULFATE
     Route: 065
  9. IRON [Suspect]
     Active Substance: IRON
     Indication: ANAEMIA
     Route: 042
  10. CHOLECALCIFEROL [Suspect]
     Active Substance: CHOLECALCIFEROL
     Route: 065
  11. ONDANSETRON [Suspect]
     Active Substance: ONDANSETRON
     Route: 065

REACTIONS (7)
  - Decreased appetite [Unknown]
  - Pyrexia [Unknown]
  - Fatigue [Unknown]
  - Exposure during pregnancy [Unknown]
  - Alopecia [Unknown]
  - Hypotension [Unknown]
  - Tachycardia [Unknown]
